FAERS Safety Report 9714140 (Version 1)
Quarter: 2013Q4

REPORT INFORMATION
  Report Type: Spontaneous
  Country: US (occurrence: US)
  Receive Date: 20131126
  Receipt Date: 20131126
  Transmission Date: 20140711
  Serious: No
  Sender: FDA-Public Use
  Company Number: US-GILEAD-2008-0019093

PATIENT
  Age: 68 Year
  Sex: Male
  Weight: 81.65 kg

DRUGS (8)
  1. LETAIRIS [Suspect]
     Indication: PULMONARY ARTERIAL HYPERTENSION
     Route: 048
     Dates: start: 20080404
  2. DIOVAN [Concomitant]
  3. CRESTOR [Concomitant]
  4. COUMADIN [Concomitant]
  5. LASIX [Concomitant]
  6. K-DUR [Concomitant]
  7. FLOMAX [Concomitant]
  8. COLCHICINE [Concomitant]

REACTIONS (2)
  - International normalised ratio fluctuation [Not Recovered/Not Resolved]
  - Red blood cell count decreased [Not Recovered/Not Resolved]
